FAERS Safety Report 8118810-6 (Version None)
Quarter: 2012Q1

REPORT INFORMATION
  Report Type: 
  Country: None (occurrence: None)
  Receive Date: 20120207
  Receipt Date: 20120130
  Transmission Date: 20120608
  Serious: Yes (Hospitalization)
  Sender: FDA-Public Use
  Company Number: JP-GILEAD-2011-0045572

PATIENT
  Age: 2 Year
  Sex: Female

DRUGS (1)
  1. LETAIRIS [Suspect]
     Indication: PULMONARY HYPERTENSION
     Dosage: 2.5 MG, UNK
     Route: 048
     Dates: start: 20110930, end: 20111002

REACTIONS (5)
  - CONDITION AGGRAVATED [None]
  - OEDEMA [None]
  - DECREASED ACTIVITY [None]
  - URINE OUTPUT DECREASED [None]
  - OXYGEN SATURATION DECREASED [None]
